FAERS Safety Report 7671946-6 (Version None)
Quarter: 2011Q3

REPORT INFORMATION
  Report Type: 
  Country: None (occurrence: None)
  Receive Date: 20110809
  Receipt Date: 20110802
  Transmission Date: 20111222
  Serious: Yes (Death)
  Sender: FDA-Public Use
  Company Number: US-GLAXOSMITHKLINE-A0939944A

PATIENT
  Age: 91 Year
  Sex: Male

DRUGS (2)
  1. CORTICOSTEROIDS [Concomitant]
     Indication: IDIOPATHIC THROMBOCYTOPENIC PURPURA
     Dates: start: 20091229
  2. PROMACTA [Suspect]
     Indication: IDIOPATHIC THROMBOCYTOPENIC PURPURA
     Dosage: 75MG PER DAY
     Dates: start: 20100811, end: 20110414

REACTIONS (5)
  - GASTRIC HAEMORRHAGE [None]
  - PLATELET COUNT DECREASED [None]
  - IDIOPATHIC THROMBOCYTOPENIC PURPURA [None]
  - DRUG INEFFECTIVE [None]
  - CARDIAC DISORDER [None]
